FAERS Safety Report 4870747-1 (Version None)
Quarter: 2005Q4

REPORT INFORMATION
  Report Type: 
  Country: None (occurrence: None)
  Receive Date: 20051229
  Receipt Date: 20051216
  Transmission Date: 20060501
  Serious: Yes (Life-Threatening)
  Sender: FDA-Public Use
  Company Number: GB200512002700

PATIENT
  Sex: Female
  Weight: 70 kg

DRUGS (8)
  1. XIGRIS [Suspect]
     Indication: SEPSIS
     Dosage: 24 UG/KG/HR, INTRAVENOUS
     Route: 042
     Dates: start: 20051024, end: 20051028
  2. PARACETAMOL (PARACETAMOL) [Concomitant]
  3. TRAMADOL HCL [Concomitant]
  4. CEFUROXIME [Concomitant]
  5. METRONIDAZOLE [Concomitant]
  6. HYDROCORTISONE [Concomitant]
  7. RANITIDINE [Concomitant]
  8. SALBUTAMOL (SALBUTAMOL) [Concomitant]

REACTIONS (2)
  - SPLENIC HAEMORRHAGE [None]
  - SPLENIC INFARCTION [None]
